FAERS Safety Report 7104914-3 (Version None)
Quarter: 2010Q4

REPORT INFORMATION
  Report Type: 
  Country: None (occurrence: None)
  Receive Date: 20101116
  Receipt Date: 20101110
  Transmission Date: 20110411
  Serious: Yes (Hospitalization)
  Sender: FDA-Public Use
  Company Number: FR-KINGPHARMUSA00001-K201001382

PATIENT
  Age: 62 Year
  Sex: Male

DRUGS (7)
  1. ALTACE [Suspect]
     Dosage: 5 MG, QD
     Route: 048
     Dates: end: 20100810
  2. PYOSTACINE [Suspect]
     Indication: LIMB INJURY
     Dosage: 2 DF, TID
     Route: 048
     Dates: start: 20100805, end: 20100810
  3. LERCANIDIPINE [Concomitant]
     Dosage: UNK
     Dates: end: 20100808
  4. PRAVASTATIN [Concomitant]
  5. PREVISCAN [Concomitant]
     Dosage: UNK
     Dates: end: 20100808
  6. GLUCOPHAGE [Concomitant]
     Dosage: UNK
     Dates: end: 20100810
  7. LANZOR [Concomitant]

REACTIONS (12)
  - BLOOD CREATININE INCREASED [None]
  - DIARRHOEA [None]
  - DRUG INTERACTION [None]
  - FALL [None]
  - GENERAL PHYSICAL HEALTH DETERIORATION [None]
  - HYPOTENSION [None]
  - HYPOVOLAEMIC SHOCK [None]
  - INTERNATIONAL NORMALISED RATIO INCREASED [None]
  - LIMB INJURY [None]
  - METABOLIC ACIDOSIS [None]
  - NECROSIS [None]
  - RENAL FAILURE ACUTE [None]
